FAERS Safety Report 5145927-0 (Version None)
Quarter: 2006Q4

REPORT INFORMATION
  Report Type: 
  Country: None (occurrence: None)
  Receive Date: 20061108
  Receipt Date: 20061026
  Transmission Date: 20070319
  Serious: Yes (Hospitalization)
  Sender: FDA-Public Use
  Company Number: PHHO2006US17713

PATIENT
  Age: 45 Year
  Sex: Female

DRUGS (8)
  1. LIORESAL [Suspect]
     Indication: MUSCLE SPASTICITY
     Dosage: UNSPECIFIED
  2. LIORESAL [Suspect]
     Dosage: 740 MCG/DAY
     Dates: start: 20060222
  3. MARINOL [Concomitant]
  4. LISINOPRIL [Concomitant]
  5. CELEXA [Concomitant]
  6. TYLENOL [Concomitant]
  7. ASTELIN [Concomitant]
  8. BACLOFEN [Suspect]
     Route: 048

REACTIONS (12)
  - ACCIDENTAL OVERDOSE [None]
  - AGITATION [None]
  - DEPRESSED LEVEL OF CONSCIOUSNESS [None]
  - DISEASE PROGRESSION [None]
  - HYPOTONIA [None]
  - MENTAL STATUS CHANGES [None]
  - MIOSIS [None]
  - MUSCLE SPASTICITY [None]
  - OPIATES POSITIVE [None]
  - PAIN [None]
  - RESPIRATORY RATE DECREASED [None]
  - SOMNOLENCE [None]
